FAERS Safety Report 5196151-7 (Version None)
Quarter: 2006Q4

REPORT INFORMATION
  Report Type: 
  Country: None (occurrence: None)
  Receive Date: 20061222
  Receipt Date: 20061215
  Transmission Date: 20070319
  Serious: Yes (Hospitalization)
  Sender: FDA-Public Use
  Company Number: 2006SP006481

PATIENT
  Age: 48 Year
  Sex: Female

DRUGS (13)
  1. TEMOZOLOMIDE (S-P) (TEMOZOLOMIDE) [Suspect]
     Indication: BRAIN NEOPLASM
     Dosage: 120 MG;QD;PO
     Route: 048
     Dates: start: 20060411
  2. TEMOZOLOMIDE (S-P) (TEMOZOLOMIDE) [Suspect]
     Indication: GLIOMA
     Dosage: 120 MG;QD;PO
     Route: 048
     Dates: start: 20060411
  3. FORTECORTIN [Concomitant]
  4. COTRIM [Concomitant]
  5. DIAZEPAM [Concomitant]
  6. ANAGASTRA [Concomitant]
  7. VENTOLIN [Concomitant]
  8. ATROVENT [Concomitant]
  9. MICOSTATIN [Concomitant]
  10. FLUMIL [Concomitant]
  11. NEOSIDANTOINA [Concomitant]
  12. LORAZEPAM [Concomitant]
  13. LEXATIN [Concomitant]

REACTIONS (5)
  - ASTHENIA [None]
  - PNEUMOCYSTIS JIROVECI INFECTION [None]
  - PRODUCTIVE COUGH [None]
  - RESPIRATORY FAILURE [None]
  - SOMNOLENCE [None]
